FAERS Safety Report 8600563-6 (Version None)
Quarter: 2012Q3

REPORT INFORMATION
  Report Type: 
  Country: None (occurrence: None)
  Receive Date: 20120808
  Receipt Date: 20120808
  Transmission Date: 20120928
  Serious: Yes (Disabling)
  Sender: FDA-Public Use
  Company Number: None

PATIENT
  Age: 63 Year
  Sex: Female
  Weight: 63.5036 kg

DRUGS (5)
  1. XANAX [Suspect]
     Dosage: 1 MG 1-2 DAILY ORAL
     Route: 048
     Dates: start: 20120101
  2. ALAZAPRAM [Suspect]
     Dosage: 1 MG 1-2 DAILY ORAL
     Route: 048
     Dates: start: 20120101
  3. KLONOPIN [Suspect]
     Indication: PANIC DISORDER
     Dosage: 1 MG ONCE DAILY ORAL
     Route: 048
     Dates: start: 19910101
  4. KLONOPIN [Suspect]
     Indication: ANXIETY DISORDER
     Dosage: 1 MG ONCE DAILY ORAL
     Route: 048
     Dates: start: 19910101
  5. CLONAZEPAM [Suspect]
     Dosage: 1 MG 1-2 DAILY ORAL
     Route: 048
     Dates: start: 20120101

REACTIONS (1)
  - BONE LOSS [None]
